FAERS Safety Report 12916298 (Version 1)
Quarter: 2016Q4

REPORT INFORMATION
  Report Type: Spontaneous
  Country: US (occurrence: US)
  Receive Date: 20161107
  Receipt Date: 20161107
  Transmission Date: 20170207
  Serious: No
  Sender: FDA-Public Use
  Company Number: US-BRISTOL-MYERS SQUIBB COMPANY-BMS-2016-087999

PATIENT
  Sex: Male

DRUGS (1)
  1. NIVOLUMAB [Suspect]
     Active Substance: NIVOLUMAB
     Indication: RENAL CANCER
     Route: 042

REACTIONS (6)
  - Erythema [Recovering/Resolving]
  - Vitamin B12 abnormal [Unknown]
  - Vitamin D abnormal [Unknown]
  - Blood testosterone decreased [Unknown]
  - Headache [Recovered/Resolved]
  - Pain [Recovered/Resolved]
